FAERS Safety Report 9746182 (Version 1)
Quarter: 2013Q4

REPORT INFORMATION
  Report Type: Spontaneous
  Country: FR (occurrence: FR)
  Receive Date: 20131211
  Receipt Date: 20131211
  Transmission Date: 20140711
  Serious: No
  Sender: FDA-Public Use
  Company Number: FR-GILEAD-2009-0026072

PATIENT
  Age: 44 Year
  Sex: Male

DRUGS (3)
  1. ATRIPLA [Suspect]
     Dates: start: 20090528
  2. TRUVADA [Concomitant]
     Dates: start: 20080221, end: 20090527
  3. SUSTIVA [Concomitant]
     Dates: start: 20080221, end: 20090527

REACTIONS (1)
  - Gynaecomastia [Unknown]
